FAERS Safety Report 6409761-3 (Version None)
Quarter: 2009Q4

REPORT INFORMATION
  Report Type: 
  Country: None (occurrence: None)
  Receive Date: 20091022
  Receipt Date: 20091012
  Transmission Date: 20100525
  Serious: Yes (Hospitalization)
  Sender: FDA-Public Use
  Company Number: US-B.I. PHARMACEUTICALS,INC./RIDGEFIELD-2009-DE-06479DE

PATIENT
  Age: 46 Year
  Sex: Female

DRUGS (1)
  1. MIRAPEX [Suspect]
     Indication: PARKINSON'S DISEASE

REACTIONS (5)
  - AKINESIA [None]
  - ASTHENIA [None]
  - DRUG DEPENDENCE [None]
  - ECONOMIC PROBLEM [None]
  - PATHOLOGICAL GAMBLING [None]
